FAERS Safety Report 15000148 (Version 4)
Quarter: 2018Q4

REPORT INFORMATION
  Report Type: Report from Study
  Country: FR (occurrence: FR)
  Receive Date: 20180612
  Receipt Date: 20181228
  Transmission Date: 20190204
  Serious: Yes (Hospitalization)
  Sender: FDA-Public Use
  Company Number: FR-ROCHE-2132559

PATIENT
  Age: 53 Year
  Sex: Male
  Weight: 69 kg

DRUGS (8)
  1. EFFERALGAN CODEINE [Concomitant]
     Active Substance: ACETAMINOPHEN\CODEINE PHOSPHATE
     Indication: PAIN
     Dosage: DOSE UNKNOWN
     Route: 048
     Dates: start: 20180322
  2. LOVENOX [Concomitant]
     Active Substance: ENOXAPARIN SODIUM
     Indication: PHLEBITIS
     Route: 058
     Dates: start: 20180608, end: 20180612
  3. TIRAGOLUMAB. [Suspect]
     Active Substance: TIRAGOLUMAB
     Indication: GASTROOESOPHAGEAL CANCER
     Dosage: ON 09/MAY/2018, THE PATIENT RECEIVED THE LAST DOSE OF MTIG7192A (600 MG) PRIOR TO ONSET OF THE EVENT
     Route: 041
     Dates: start: 20180214, end: 20180611
  4. RAMIPRIL. [Concomitant]
     Active Substance: RAMIPRIL
     Route: 048
     Dates: start: 20140612
  5. RAMIPRIL. [Concomitant]
     Active Substance: RAMIPRIL
     Indication: HYPERTENSION
     Route: 048
     Dates: start: 20180322
  6. ARIXTRA [Concomitant]
     Active Substance: FONDAPARINUX SODIUM
     Indication: PHLEBITIS
     Route: 058
     Dates: start: 20180603, end: 20180612
  7. ATEZOLIZUMAB. [Suspect]
     Active Substance: ATEZOLIZUMAB
     Indication: GASTROOESOPHAGEAL CANCER
     Dosage: ON 09/MAY/2018, THE PATIENT RECEIVED THE LAST DOSE OF ATEZOLIZUMAB PRIOR TO ONSET OF THE EVENT (TIME
     Route: 041
     Dates: start: 20180214, end: 20180611
  8. INEXIUM [Concomitant]
     Active Substance: ESOMEPRAZOLE
     Route: 048
     Dates: start: 20180215

REACTIONS (2)
  - Generalised oedema [Not Recovered/Not Resolved]
  - Capillary leak syndrome [Recovering/Resolving]

NARRATIVE: CASE EVENT DATE: 20180525
